FAERS Safety Report 14541586 (Version 1)
Quarter: 2018Q1

REPORT INFORMATION
  Report Type: Spontaneous
  Country: FR (occurrence: FR)
  Receive Date: 20180216
  Receipt Date: 20180216
  Transmission Date: 20180509
  Serious: Yes (Other)
  Sender: FDA-Public Use
  Company Number: FR-OTSUKA-DJ20103900

PATIENT

DRUGS (1)
  1. ABILIFY [Suspect]
     Active Substance: ARIPIPRAZOLE
     Indication: SCHIZOPHRENIA
     Route: 048
     Dates: start: 20100512, end: 20100608

REACTIONS (3)
  - Drug-induced liver injury [Recovered/Resolved]
  - Platelet count decreased [Recovered/Resolved]
  - Hepatitis [Recovered/Resolved]
